FAERS Safety Report 4956225-X (Version None)
Quarter: 2006Q1

REPORT INFORMATION
  Report Type: 
  Country: None (occurrence: None)
  Receive Date: 20060329
  Receipt Date: 20060316
  Transmission Date: 20060701
  Serious: Yes (Death)
  Sender: FDA-Public Use
  Company Number: JP-BOEHRINGER INGELHEIM PHARMACEUTICALS, INC.-2006-DE-01602GL

PATIENT
  Sex: Female

DRUGS (10)
  1. TELMISARTAN [Suspect]
     Dates: start: 20051231, end: 20060213
  2. CEFTAZIDIME SODIUM [Suspect]
     Indication: URINARY TRACT INFECTION
     Route: 042
     Dates: start: 20060126, end: 20060205
  3. OSELTAMIVIR PHOSPHATE [Suspect]
     Indication: INFLUENZA
     Route: 048
     Dates: start: 20060128, end: 20060201
  4. VEGETAMIN A [Suspect]
     Route: 048
     Dates: start: 20051231, end: 20060213
  5. AMLODIPINE [Suspect]
     Indication: HYPERTENSION
     Route: 048
     Dates: start: 20060117, end: 20060213
  6. ACETAMINOPHEN [Suspect]
     Route: 048
     Dates: start: 20060128
  7. ASPIRIN [Concomitant]
     Dates: start: 20051231, end: 20060213
  8. FRUSEMIDE [Concomitant]
     Dates: start: 20051231, end: 20060213
  9. SPIRONOLACTONE [Concomitant]
     Dates: start: 20051231, end: 20060213
  10. PHENOXYMETHYLPENICILLIN [Concomitant]
     Dates: start: 20060209, end: 20060214

REACTIONS (3)
  - DISSEMINATED INTRAVASCULAR COAGULATION [None]
  - GENERALISED OEDEMA [None]
  - TOXIC EPIDERMAL NECROLYSIS [None]
